FAERS Safety Report 9210206 (Version 1)
Quarter: 2013Q2

REPORT INFORMATION
  Report Type: Spontaneous
  Country: US (occurrence: US)
  Receive Date: 20130404
  Receipt Date: 20130404
  Transmission Date: 20140414
  Serious: No
  Sender: FDA-Public Use
  Company Number: US-009507513-1304USA001674

PATIENT
  Age: 84 Year
  Sex: Female

DRUGS (5)
  1. NASONEX [Suspect]
     Indication: COUGH
     Dosage: 2 SPRAYS IN EACH NOSTRIL, QD
     Route: 045
     Dates: start: 201301
  2. NASONEX [Suspect]
     Dosage: UNK
     Route: 045
     Dates: start: 201301
  3. NASONEX [Suspect]
     Dosage: UNK
     Route: 045
     Dates: start: 201302
  4. NASONEX [Suspect]
     Dosage: UNK
     Route: 045
     Dates: start: 201303
  5. VISTARIL [Concomitant]

REACTIONS (4)
  - Drug ineffective [Not Recovered/Not Resolved]
  - Therapeutic response decreased [Not Recovered/Not Resolved]
  - Drug ineffective [Not Recovered/Not Resolved]
  - Off label use [Unknown]
